FAERS Safety Report 6177522-9 (Version None)
Quarter: 2009Q2

REPORT INFORMATION
  Report Type: 
  Country: None (occurrence: None)
  Receive Date: 20090504
  Receipt Date: 20090430
  Transmission Date: 20091009
  Serious: No
  Sender: FDA-Public Use
  Company Number: US-B.I. PHARMACEUTICALS,INC./RIDGEFIELD-2009-BP-02300BP

PATIENT
  Age: 77 Year
  Sex: Male
  Weight: 98 kg

DRUGS (6)
  1. FLOMAX [Suspect]
     Indication: POLLAKIURIA
     Dosage: .4MG
     Dates: start: 20090209, end: 20090212
  2. FLOMAX [Suspect]
     Indication: NOCTURIA
  3. VYTORIN [Concomitant]
  4. COZAAR [Concomitant]
     Dosage: 100MG
  5. HYDROCHLOROTHIAZIDE [Concomitant]
     Dosage: 25MG
  6. TAZTIA XT [Concomitant]
     Dosage: 300MG

REACTIONS (2)
  - BLOOD PRESSURE DECREASED [None]
  - DIZZINESS [None]
